FAERS Safety Report 6671434-X (Version None)
Quarter: 2010Q2

REPORT INFORMATION
  Report Type: 
  Country: None (occurrence: None)
  Receive Date: 20100406
  Receipt Date: 20100406
  Transmission Date: 20101027
  Serious: No
  Sender: FDA-Public Use
  Company Number: None

PATIENT
  Age: 48 Year
  Sex: Female
  Weight: 61.2356 kg

DRUGS (2)
  1. ACTONEL [Suspect]
     Indication: OSTEOPOROSIS
     Dosage: 150 MG ONE MONTHLY PO
     Route: 048
     Dates: start: 20091201, end: 20100401
  2. ACTONEL [Suspect]

REACTIONS (10)
  - ARTHRALGIA [None]
  - BONE PAIN [None]
  - CHEST PAIN [None]
  - CRYING [None]
  - HYPERHIDROSIS [None]
  - PAIN IN EXTREMITY [None]
  - PAIN IN JAW [None]
  - RESTLESSNESS [None]
  - TREATMENT FAILURE [None]
  - VOMITING [None]
